FAERS Safety Report 16022017 (Version 1)
Quarter: 2019Q1

REPORT INFORMATION
  Report Type: Report from Study
  Country: US (occurrence: US)
  Receive Date: 20190301
  Receipt Date: 20190301
  Transmission Date: 20190418
  Serious: Yes (Hospitalization, Other)
  Sender: FDA-Public Use
  Company Number: US-SA-2019SA052611

PATIENT
  Age: 56 Year
  Sex: Male

DRUGS (1)
  1. INSULIN GLARGINE [Suspect]
     Active Substance: INSULIN GLARGINE
     Indication: TYPE 2 DIABETES MELLITUS
     Dosage: 12 IU, QD
     Route: 058

REACTIONS (13)
  - Surgery [Unknown]
  - Disability [Not Recovered/Not Resolved]
  - Post laminectomy syndrome [Recovered/Resolved]
  - Neuropathy peripheral [Not Recovered/Not Resolved]
  - Hypertension [Not Recovered/Not Resolved]
  - Intervertebral disc protrusion [Recovered/Resolved]
  - Abdominal discomfort [Recovered/Resolved]
  - Multiple system atrophy [Not Recovered/Not Resolved]
  - Pain [Not Recovered/Not Resolved]
  - Hyperlipidaemia [Not Recovered/Not Resolved]
  - Cerebrovascular accident [Recovered/Resolved]
  - Diabetes mellitus [Not Recovered/Not Resolved]
  - Spinal operation [Unknown]
